FAERS Safety Report 11972132 (Version 3)
Quarter: 2016Q3

REPORT INFORMATION
  Report Type: Spontaneous
  Country: CY (occurrence: CY)
  Receive Date: 20160128
  Receipt Date: 20160921
  Transmission Date: 20161109
  Serious: Yes (Other)
  Sender: FDA-Public Use
  Company Number: PHHY2016CY008113

PATIENT
  Age: 73 Year
  Sex: Female
  Weight: 83 kg

DRUGS (7)
  1. TYVERB [Suspect]
     Active Substance: LAPATINIB
     Dosage: 4 DF, QD
     Route: 048
     Dates: start: 20160906
  2. OCTENISEPT [Concomitant]
     Active Substance: OCTENIDINE\PHENOXYETHANOL
     Indication: DERMATITIS BULLOUS
     Dosage: UNK
     Route: 065
  3. XELODA [Suspect]
     Active Substance: CAPECITABINE
     Indication: BREAST CANCER METASTATIC
     Dosage: UNK (2 WEEKS ON 1 WEEK OFF)
     Route: 048
     Dates: start: 20151215, end: 20160103
  4. TYVERB [Suspect]
     Active Substance: LAPATINIB
     Indication: BREAST CANCER METASTATIC
     Dosage: 10 DF, QD (FOR 2 WEEKS)
     Route: 048
     Dates: start: 201512, end: 201601
  5. TYVERB [Suspect]
     Active Substance: LAPATINIB
     Dosage: 5 DF, QD
     Route: 048
     Dates: start: 20160623, end: 20160726
  6. OCTENISEPT [Concomitant]
     Active Substance: OCTENIDINE\PHENOXYETHANOL
     Indication: BLISTER INFECTED
  7. TYVERB [Suspect]
     Active Substance: LAPATINIB
     Dosage: 5 DF, QD
     Route: 048
     Dates: start: 20160425, end: 20160523

REACTIONS (10)
  - Overdose [Unknown]
  - Dermatitis bullous [Recovered/Resolved]
  - Mucosal inflammation [Recovered/Resolved]
  - Dermatitis bullous [Recovered/Resolved]
  - Asthenia [Recovered/Resolved]
  - Blister infected [Unknown]
  - Oedema peripheral [Recovered/Resolved]
  - Palmar-plantar erythrodysaesthesia syndrome [Recovering/Resolving]
  - Incorrect dose administered [Unknown]
  - Dermatitis bullous [Recovered/Resolved]

NARRATIVE: CASE EVENT DATE: 20160103
